FAERS Safety Report 15388378 (Version 4)
Quarter: 2019Q2

REPORT INFORMATION
  Report Type: Report from Study
  Country: US (occurrence: US)
  Receive Date: 20180915
  Receipt Date: 20190619
  Transmission Date: 20190711
  Serious: No
  Sender: FDA-Public Use
  Company Number: PHEH2018US038267

PATIENT
  Age: 10 Year
  Sex: Female

DRUGS (2)
  1. ILARIS [Suspect]
     Active Substance: CANAKINUMAB
     Indication: CRYOPYRIN ASSOCIATED PERIODIC SYNDROME
     Dosage: 40 MG, Q4W
     Route: 058
  2. ILARIS [Suspect]
     Active Substance: CANAKINUMAB
     Dosage: 60 MG, Q4W
     Route: 058

REACTIONS (5)
  - Migraine [Unknown]
  - Pyrexia [Recovered/Resolved]
  - Vertigo [Recovered/Resolved]
  - Arthralgia [Unknown]
  - Vertigo [Unknown]

NARRATIVE: CASE EVENT DATE: 20190605
